FAERS Safety Report 18397567 (Version 3)
Quarter: 2020Q4

REPORT INFORMATION
  Report Type: Spontaneous
  Country: US (occurrence: DE)
  Receive Date: 20201019
  Receipt Date: 20201112
  Transmission Date: 20210114
  Serious: No
  Sender: FDA-Public Use
  Company Number: US-ELI_LILLY_AND_COMPANY-US202010007232

PATIENT
  Age: 78 Year
  Sex: Female
  Weight: 56.4 kg

DRUGS (3)
  1. HALAVEN [Interacting]
     Active Substance: ERIBULIN MESYLATE
     Dosage: 1.62 MG, CYCLICAL
     Route: 042
     Dates: start: 20200226, end: 20200909
  2. HALAVEN [Interacting]
     Active Substance: ERIBULIN MESYLATE
     Indication: BREAST CANCER
     Dosage: 2.03 MG, CYCLICAL
     Route: 042
     Dates: start: 20200115, end: 20200212
  3. CYMBALTA [Suspect]
     Active Substance: DULOXETINE HYDROCHLORIDE
     Indication: NEUROPATHY PERIPHERAL
     Dosage: 200 MG, DAILY
     Route: 048
     Dates: start: 20200909, end: 20200917

REACTIONS (4)
  - Leukopenia [Recovering/Resolving]
  - Peripheral sensory neuropathy [Not Recovered/Not Resolved]
  - Drug interaction [Recovered/Resolved]
  - Vomiting [Recovered/Resolved]

NARRATIVE: CASE EVENT DATE: 20200130
